FAERS Safety Report 17785077 (Version 5)
Quarter: 2021Q2

REPORT INFORMATION
  Report Type: Spontaneous
  Country: US (occurrence: US)
  Receive Date: 20200513
  Receipt Date: 20210622
  Transmission Date: 20210716
  Serious: Yes (Hospitalization, Other)
  Sender: FDA-Public Use
  Company Number: US-GILEAD-2020-0466520

PATIENT
  Age: 52 Year
  Sex: Male
  Weight: 81.63 kg

DRUGS (29)
  1. TRUVADA [Suspect]
     Active Substance: EMTRICITABINE\TENOFOVIR DISOPROXIL FUMARATE
     Dosage: UNK
     Route: 065
     Dates: start: 2008, end: 20200221
  2. BIKTARVY [Concomitant]
     Active Substance: BICTEGRAVIR SODIUM\EMTRICITABINE\TENOFOVIR ALAFENAMIDE FUMARATE
  3. TYLENOL [Concomitant]
     Active Substance: ACETAMINOPHEN
  4. VALGANCICLOVIR. [Concomitant]
     Active Substance: VALGANCICLOVIR
  5. TRUVADA [Suspect]
     Active Substance: EMTRICITABINE\TENOFOVIR DISOPROXIL FUMARATE
     Dosage: UNK
     Route: 048
     Dates: start: 2013
  6. TRUVADA [Suspect]
     Active Substance: EMTRICITABINE\TENOFOVIR DISOPROXIL FUMARATE
     Dosage: UNK
     Route: 048
     Dates: start: 2014, end: 2020
  7. AMOXICILLIN. [Concomitant]
     Active Substance: AMOXICILLIN
  8. EPIVIR [Concomitant]
     Active Substance: LAMIVUDINE
  9. TIVICAY [Concomitant]
     Active Substance: DOLUTEGRAVIR SODIUM
  10. VIREAD [Suspect]
     Active Substance: TENOFOVIR DISOPROXIL FUMARATE
     Indication: HIV INFECTION
     Dosage: UNK
     Route: 048
     Dates: start: 2013
  11. HYDRALAZINE [Concomitant]
     Active Substance: HYDRALAZINE HYDROCHLORIDE
  12. INSULIN [Concomitant]
     Active Substance: INSULIN NOS
  13. TRUVADA [Suspect]
     Active Substance: EMTRICITABINE\TENOFOVIR DISOPROXIL FUMARATE
     Indication: HIV INFECTION
     Dosage: UNK
     Route: 048
     Dates: start: 200509, end: 202002
  14. PEPCID [Concomitant]
     Active Substance: FAMOTIDINE
  15. GANCICLOVIR. [Concomitant]
     Active Substance: GANCICLOVIR
  16. ALPRAZOLAM. [Concomitant]
     Active Substance: ALPRAZOLAM
  17. FAMOTIDINE. [Concomitant]
     Active Substance: FAMOTIDINE
  18. WARFARIN [Concomitant]
     Active Substance: WARFARIN
  19. ASPIRIN [ACETYLSALICYLIC ACID] [Concomitant]
     Active Substance: ASPIRIN
  20. PRAVASTATIN. [Concomitant]
     Active Substance: PRAVASTATIN
  21. TACROLIMUS. [Concomitant]
     Active Substance: TACROLIMUS
  22. PREZISTA [Concomitant]
     Active Substance: DARUNAVIR ETHANOLATE
  23. METOPROLOL. [Concomitant]
     Active Substance: METOPROLOL
  24. PREDNISOLONE. [Concomitant]
     Active Substance: PREDNISOLONE
  25. NORVIR [Concomitant]
     Active Substance: RITONAVIR
  26. BACTRIM [Concomitant]
     Active Substance: SULFAMETHOXAZOLE\TRIMETHOPRIM
  27. CRESTOR [Concomitant]
     Active Substance: ROSUVASTATIN CALCIUM
  28. ATRIPLA [Suspect]
     Active Substance: EFAVIRENZ\EMTRICITABINE\TENOFOVIR DISOPROXIL FUMARATE
     Indication: HIV INFECTION
     Dosage: UNK
     Route: 065
     Dates: start: 2006, end: 2008
  29. CARVEDILOL. [Concomitant]
     Active Substance: CARVEDILOL

REACTIONS (15)
  - Exercise tolerance decreased [Unknown]
  - Anxiety [Unknown]
  - Acute kidney injury [Unknown]
  - Chronic kidney disease [Not Recovered/Not Resolved]
  - Osteoporosis [Not Recovered/Not Resolved]
  - Pain [Unknown]
  - Anhedonia [Unknown]
  - Bone loss [Unknown]
  - End stage renal disease [Recovered/Resolved]
  - Emotional distress [Unknown]
  - Renal failure [Unknown]
  - Renal transplant [Recovered/Resolved]
  - Bone density decreased [Unknown]
  - Renal tubular injury [Recovered/Resolved]
  - Osteonecrosis [Unknown]

NARRATIVE: CASE EVENT DATE: 201504
